FAERS Safety Report 9355170 (Version 1)
Quarter: 2013Q2

REPORT INFORMATION
  Report Type: Report from Study
  Country: AR (occurrence: AR)
  Receive Date: 20130619
  Receipt Date: 20130619
  Transmission Date: 20140414
  Serious: Yes (Other)
  Sender: FDA-Public Use
  Company Number: PHHY2013AR060563

PATIENT
  Sex: Male

DRUGS (2)
  1. ONBREZ [Suspect]
     Indication: RESPIRATORY DISORDER
  2. ONBREZ [Suspect]
     Indication: OFF LABEL USE

REACTIONS (4)
  - Renal disorder [Not Recovered/Not Resolved]
  - Immobile [Not Recovered/Not Resolved]
  - American trypanosomiasis [Not Recovered/Not Resolved]
  - Urinary incontinence [Not Recovered/Not Resolved]
